FAERS Safety Report 5741274-4 (Version None)
Quarter: 2008Q2

REPORT INFORMATION
  Report Type: 
  Country: None (occurrence: None)
  Receive Date: 20080514
  Receipt Date: 20080430
  Transmission Date: 20081010
  Serious: Yes (Other)
  Sender: FDA-Public Use
  Company Number: 2007BI011074

PATIENT
  Age: 43 Year
  Sex: Male

DRUGS (4)
  1. TYSABRI [Suspect]
     Indication: MULTIPLE SCLEROSIS
     Dosage: 300 MG; QM; IV
     Route: 042
     Dates: start: 20061026, end: 20071001
  2. SPIRULINA [Concomitant]
  3. VITAMIN CAP [Concomitant]
  4. PREDNISONE TAB [Concomitant]

REACTIONS (21)
  - ABDOMINAL PAIN [None]
  - AUTOIMMUNE HEPATITIS [None]
  - BLOOD ALBUMIN DECREASED [None]
  - BLOOD CREATININE INCREASED [None]
  - BLOOD UREA INCREASED [None]
  - CALCULUS URETERIC [None]
  - CERULOPLASMIN INCREASED [None]
  - CHILLS [None]
  - CRYSTAL URINE PRESENT [None]
  - DIARRHOEA [None]
  - ERUCTATION [None]
  - FALL [None]
  - FLUSHING [None]
  - HEPATIC FIBROSIS [None]
  - HEPATITIS ACUTE [None]
  - HYDRONEPHROSIS [None]
  - INTERNATIONAL NORMALISED RATIO INCREASED [None]
  - NEPHROLITHIASIS [None]
  - PAIN [None]
  - SERUM FERRITIN INCREASED [None]
  - URETERIC DILATATION [None]
